FAERS Safety Report 22107220 (Version 2)
Quarter: 2024Q2

REPORT INFORMATION
  Report Type: Spontaneous
  Country: US (occurrence: US)
  Receive Date: 20230317
  Receipt Date: 20240408
  Transmission Date: 20240715
  Serious: No
  Sender: FDA-Public Use
  Company Number: US-UCBSA-2022003872

PATIENT

DRUGS (2)
  1. BRIVIACT [Interacting]
     Active Substance: BRIVARACETAM
     Indication: Product used for unknown indication
  2. CARBAMAZEPINE [Interacting]
     Active Substance: CARBAMAZEPINE

REACTIONS (1)
  - Drug interaction [Unknown]
